FAERS Safety Report 6610440-8 (Version None)
Quarter: 2010Q1

REPORT INFORMATION
  Report Type: 
  Country: None (occurrence: None)
  Receive Date: 20100302
  Receipt Date: 20100224
  Transmission Date: 20100710
  Serious: Yes (Death)
  Sender: FDA-Public Use
  Company Number: JP-JNJFOC-20100211002

PATIENT
  Sex: Female
  Weight: 71 kg

DRUGS (29)
  1. DOXORUBICIN HCL [Suspect]
     Indication: OVARIAN CANCER RECURRENT
     Route: 042
  2. DOXORUBICIN HCL [Suspect]
     Route: 042
  3. FENTANYL [Suspect]
     Indication: DRUG USE FOR UNKNOWN INDICATION
     Route: 062
  4. FENTANYL [Suspect]
     Route: 062
  5. OXINORM [Suspect]
     Indication: DRUG USE FOR UNKNOWN INDICATION
     Route: 048
  6. AZUNOL [Concomitant]
     Indication: PROPHYLAXIS
     Route: 049
  7. MAGMITT [Concomitant]
     Route: 048
  8. NAUZELIN [Concomitant]
     Indication: PROPHYLAXIS
     Route: 048
  9. LOXONIN [Concomitant]
     Route: 048
  10. SELBEX [Concomitant]
     Indication: PROPHYLAXIS
     Route: 048
  11. SOLANAX [Concomitant]
     Indication: PROPHYLAXIS
     Route: 048
  12. P GUARD [Concomitant]
     Route: 048
  13. GABAPEN [Concomitant]
     Route: 048
  14. RINESTERON [Concomitant]
     Route: 048
  15. OMEPRAZOLE [Concomitant]
     Indication: PROPHYLAXIS
     Route: 048
  16. KYTRIL [Concomitant]
     Indication: PROPHYLAXIS
     Route: 042
  17. KYTRIL [Concomitant]
     Route: 042
  18. KYTRIL [Concomitant]
     Indication: NAUSEA
     Route: 042
  19. KYTRIL [Concomitant]
     Route: 042
  20. KYTRIL [Concomitant]
     Route: 048
  21. NAUZELIN [Concomitant]
     Route: 048
  22. NAUZELIN [Concomitant]
     Route: 048
  23. NAUZELIN [Concomitant]
     Route: 048
  24. NAUZELIN [Concomitant]
     Indication: NAUSEA
     Route: 048
  25. NAUZELIN [Concomitant]
     Route: 048
  26. NAUZELIN [Concomitant]
     Route: 048
  27. ADONA [Concomitant]
     Route: 048
  28. TRANSAMIN [Concomitant]
     Route: 048
  29. DERMOVATE [Concomitant]
     Indication: PALMAR-PLANTAR ERYTHRODYSAESTHESIA SYNDROME
     Route: 061

REACTIONS (1)
  - DEATH [None]
